FAERS Safety Report 9880908 (Version 1)
Quarter: 2014Q1

REPORT INFORMATION
  Report Type: Spontaneous
  Country: GB (occurrence: None)
  Receive Date: 20140205
  Receipt Date: 20140205
  Transmission Date: 20141002
  Serious: Yes (Other)
  Sender: FDA-Public Use
  Company Number: 2014-000237

PATIENT
  Age: 26 Year
  Sex: Female

DRUGS (2)
  1. DORYX [Suspect]
     Indication: LOWER RESPIRATORY TRACT INFECTION
     Route: 048
  2. ZAPONEX [Suspect]
     Indication: PRODUCT USED FOR UNKNOWN INDICATION

REACTIONS (1)
  - Lower respiratory tract infection [None]
